FAERS Safety Report 6391260-9 (Version None)
Quarter: 2009Q4

REPORT INFORMATION
  Report Type: 
  Country: None (occurrence: None)
  Receive Date: 20091006
  Receipt Date: 20091006
  Transmission Date: 20100525
  Serious: Yes (Other)
  Sender: FDA-Public Use
  Company Number: None

PATIENT
  Sex: Male
  Weight: 52.46 kg

DRUGS (1)
  1. TRUVADA [Suspect]
     Indication: HIV INFECTION

REACTIONS (4)
  - DEHYDRATION [None]
  - GLYCOSURIA [None]
  - PROTEINURIA [None]
  - RENAL FAILURE ACUTE [None]
